FAERS Safety Report 5532871-X (Version None)
Quarter: 2007Q4

REPORT INFORMATION
  Report Type: 
  Country: None (occurrence: None)
  Receive Date: 20071129
  Receipt Date: 20071129
  Transmission Date: 20080405
  Serious: No
  Sender: FDA-Public Use
  Company Number: None

PATIENT
  Age: 66 Year
  Sex: Female

DRUGS (1)
  1. PRAVACHOL [Suspect]

REACTIONS (6)
  - ASTHENIA [None]
  - BACK DISORDER [None]
  - FALL [None]
  - MUSCULAR WEAKNESS [None]
  - NERVE INJURY [None]
  - WALKING AID USER [None]
